FAERS Safety Report 11659329 (Version 2)
Quarter: 2015Q4

REPORT INFORMATION
  Report Type: Spontaneous
  Country: GB (occurrence: GB)
  Receive Date: 20151026
  Receipt Date: 20151201
  Transmission Date: 20160304
  Serious: Yes (Other)
  Sender: FDA-Public Use
  Company Number: GB-ACCORD-034686

PATIENT
  Age: 57 Year
  Sex: Male

DRUGS (14)
  1. ONDANSETRON [Suspect]
     Active Substance: ONDANSETRON
     Indication: HODGKIN^S DISEASE
     Dosage: ABVD REGIMEN: FOR 2 DAYS ON DAYS 1 AND 15 OF CYCLE. IGEV REGIMEN: FOR 4 DAYS.
     Route: 048
     Dates: start: 2015
  2. VINORELBINE [Suspect]
     Active Substance: VINORELBINE\VINORELBINE TARTRATE
     Indication: HODGKIN^S DISEASE
     Dosage: IGEV REGIMEN
     Route: 041
     Dates: start: 2015
  3. FLUCONAZOLE. [Concomitant]
     Active Substance: FLUCONAZOLE
     Dates: start: 2015
  4. ALLOPURINOL/ALLOPURINOL SODIUM [Suspect]
     Active Substance: ALLOPURINOL SODIUM
     Indication: HODGKIN^S DISEASE
     Dosage: MORNING. ABVD:7 DAYS STARTING DAYS 1 AND 15 OF CYCLE (FIRST 2 CYCLES). IGEV:7 DAYS (CYCLE 1 AND 2).
     Route: 048
     Dates: start: 2015
  5. GEMCITABINE/GEMCITABINE HYDROCHLORIDE [Suspect]
     Active Substance: GEMCITABINE\GEMCITABINE HYDROCHLORIDE
     Indication: HODGKIN^S DISEASE
     Dosage: IGEV REGIMEN
     Route: 041
     Dates: start: 2015
  6. COTRIMOXAZOLE [Suspect]
     Active Substance: SULFAMETHOXAZOLE\TRIMETHOPRIM
     Indication: HODGKIN^S DISEASE
     Dosage: BOTH REGIMES. 3 TIMES A WEEK (MONDAY, WEDNESDAY AND FRIDAY).
     Route: 048
     Dates: start: 2015
  7. PREDNISOLONE. [Concomitant]
     Active Substance: PREDNISOLONE
     Dates: start: 2015
  8. GRANULOCYTE COLONY STIMULATING [Concomitant]
     Active Substance: GRANULOCYTE COLONY-STIMULATING FACTOR NOS
     Dosage: STARTING ON DAY 7
     Route: 058
     Dates: start: 2015
  9. OMEPRAZOLE. [Concomitant]
     Active Substance: OMEPRAZOLE
     Route: 048
     Dates: start: 2015
  10. ACICLOVIR [Suspect]
     Active Substance: ACYCLOVIR
     Indication: HODGKIN^S DISEASE
     Dosage: 28 DAYS PER REGIME.
     Route: 048
     Dates: start: 2015
  11. IFOSFAMIDE. [Suspect]
     Active Substance: IFOSFAMIDE
     Indication: HODGKIN^S DISEASE
     Dosage: IGEV REGIMEN
     Route: 041
     Dates: start: 2015
  12. PHENYTOIN. [Concomitant]
     Active Substance: PHENYTOIN
     Dosage: FIRST 7 DAYS
     Dates: start: 2015
  13. CHLORHEXIDINE [Concomitant]
     Active Substance: CHLORHEXIDINE
     Dates: start: 2015
  14. MESNA. [Concomitant]
     Active Substance: MESNA
     Route: 042

REACTIONS (4)
  - Blister [Not Recovered/Not Resolved]
  - Off label use [Unknown]
  - Pruritus [Unknown]
  - Rash [Unknown]

NARRATIVE: CASE EVENT DATE: 20150813
